FAERS Safety Report 19421147 (Version 1)
Quarter: 2021Q2

REPORT INFORMATION
  Report Type: Spontaneous
  Country: US (occurrence: US)
  Receive Date: 20210616
  Receipt Date: 20210616
  Transmission Date: 20210717
  Serious: No
  Sender: FDA-Public Use
  Company Number: US-AUROBINDO-AUR-APL-2021-001106

PATIENT
  Age: 65 Year
  Sex: Female
  Weight: 77.09 kg

DRUGS (6)
  1. OLMESARTAN MEDOXOMIL+HYDROCHLOROTHIAZIDE TABLETS 20MG/12.5MG [Suspect]
     Active Substance: HYDROCHLOROTHIAZIDE\OLMESARTAN MEDOXOMIL
     Dosage: 1 DOSAGE FORM, ONCE A DAY (SHE WAS TAKEN 03 MONTHS SUPPLY OF 90 DAYS)
     Route: 048
  2. OLMESARTAN MEDOXOMIL+HYDROCHLOROTHIAZIDE TABLETS 20MG/12.5MG [Suspect]
     Active Substance: HYDROCHLOROTHIAZIDE\OLMESARTAN MEDOXOMIL
     Dosage: 1 DOSAGE FORM
     Route: 065
     Dates: start: 20210104
  3. GABAPENTIN. [Concomitant]
     Active Substance: GABAPENTIN
     Indication: NEUROPATHY PERIPHERAL
     Dosage: UNK
     Route: 065
  4. OLMESARTAN MEDOXOMIL+HYDROCHLOROTHIAZIDE TABLETS 20MG/12.5MG [Suspect]
     Active Substance: HYDROCHLOROTHIAZIDE\OLMESARTAN MEDOXOMIL
     Indication: HYPERTENSION
     Dosage: 1 DOSAGE FORM, ONCE A DAY FIRST BOTTLE
     Route: 065
     Dates: start: 20201124
  5. OLMESARTAN MEDOXOMIL+HYDROCHLOROTHIAZIDE TABLETS 20MG/12.5MG [Suspect]
     Active Substance: HYDROCHLOROTHIAZIDE\OLMESARTAN MEDOXOMIL
     Dosage: 1 DOSAGE FORM, ONCE A DAY SECOND BOTTLE
     Route: 065
     Dates: start: 20201223
  6. SYNTHROID [Concomitant]
     Active Substance: LEVOTHYROXINE SODIUM
     Indication: THYROID DISORDER
     Dosage: UNK
     Route: 065

REACTIONS (4)
  - Abdominal pain upper [Recovered/Resolved]
  - Product odour abnormal [Unknown]
  - Nausea [Recovered/Resolved]
  - Product adhesion issue [Unknown]

NARRATIVE: CASE EVENT DATE: 20201223
